FAERS Safety Report 6491207-0 (Version None)
Quarter: 2009Q4

REPORT INFORMATION
  Report Type: 
  Country: None (occurrence: None)
  Receive Date: 20091211
  Receipt Date: 20091201
  Transmission Date: 20100525
  Serious: Yes (Hospitalization)
  Sender: FDA-Public Use
  Company Number: PHHY2009US53037

PATIENT
  Sex: Female

DRUGS (1)
  1. GLEEVEC [Suspect]
     Indication: CERVIX CARCINOMA
     Dosage: 400 MG, QD
     Route: 048
     Dates: start: 20090701

REACTIONS (4)
  - FULL BLOOD COUNT DECREASED [None]
  - INFECTION [None]
  - MUSCULAR WEAKNESS [None]
  - PYREXIA [None]
